FAERS Safety Report 7478431-5 (Version None)
Quarter: 2011Q2

REPORT INFORMATION
  Report Type: 
  Country: None (occurrence: None)
  Receive Date: 20110513
  Receipt Date: 20100607
  Transmission Date: 20111010
  Serious: No
  Sender: FDA-Public Use
  Company Number: US-PFIZER INC-2010071784

PATIENT
  Age: 81 Year
  Sex: Male
  Weight: 87 kg

DRUGS (2)
  1. CELEBREX [Suspect]
     Indication: JOINT STIFFNESS
  2. CELEBREX [Suspect]
     Indication: MUSCULOSKELETAL STIFFNESS
     Dosage: 200 MG, 1X/DAY
     Dates: start: 20100501

REACTIONS (1)
  - CHANGE OF BOWEL HABIT [None]
